FAERS Safety Report 23219745 (Version 3)
Quarter: 2024Q3

REPORT INFORMATION
  Report Type: Spontaneous
  Country: US (occurrence: US)
  Receive Date: 20231122
  Receipt Date: 20240822
  Transmission Date: 20241017
  Serious: No
  Sender: AVADEL CNS PHARMA
  Company Number: US-AVADEL CNS PHARMACEUTICALS, LLC-2023AVA00097

PATIENT
  Age: 41 Year
  Sex: Female
  Weight: 55.329 kg

DRUGS (18)
  1. LUMRYZ [Suspect]
     Active Substance: SODIUM OXYBATE
     Indication: Narcolepsy
     Dosage: 4.5 G, 1X/DAY BEDTIME
     Dates: start: 202308
  2. LUMRYZ [Suspect]
     Active Substance: SODIUM OXYBATE
     Indication: Somnolence
  3. LUMRYZ [Suspect]
     Active Substance: SODIUM OXYBATE
     Indication: Cataplexy
  4. LUMRYZ [Suspect]
     Active Substance: SODIUM OXYBATE
     Indication: Narcolepsy
     Dosage: 7.5 G, ONCE NIGHTLY
  5. LUMRYZ [Suspect]
     Active Substance: SODIUM OXYBATE
     Indication: Somnolence
  6. LUMRYZ [Suspect]
     Active Substance: SODIUM OXYBATE
     Indication: Cataplexy
  7. PERCOCET [Suspect]
     Active Substance: ACETAMINOPHEN\OXYCODONE HYDROCHLORIDE
  8. VITAMIN D3 [Concomitant]
     Active Substance: CHOLECALCIFEROL
  9. VITAMINS [Concomitant]
     Active Substance: VITAMINS
  10. IRON [Concomitant]
     Active Substance: IRON
  11. LIDOCAINE [Concomitant]
     Active Substance: LIDOCAINE
  12. DIAZEPAM [Concomitant]
     Active Substance: DIAZEPAM
     Dosage: UNK, AS NEEDED
  13. DIAZEPAM [Concomitant]
     Active Substance: DIAZEPAM
     Dosage: UNK, EVERY MORNING
  14. DIAZEPAM [Concomitant]
     Active Substance: DIAZEPAM
     Dosage: UNK, AS NEEDED
  15. EFFEXOR XR [Concomitant]
     Active Substance: VENLAFAXINE HYDROCHLORIDE
  16. ADDERALL [Concomitant]
     Active Substance: AMPHETAMINE ASPARTATE\AMPHETAMINE SULFATE\DEXTROAMPHETAMINE SACCHARATE\DEXTROAMPHETAMINE SULFATE
  17. PROVIGIL [Concomitant]
     Active Substance: MODAFINIL
  18. XOLAIR [Concomitant]
     Active Substance: OMALIZUMAB

REACTIONS (10)
  - Middle insomnia [Not Recovered/Not Resolved]
  - Fatigue [Unknown]
  - Metabolic disorder [Not Recovered/Not Resolved]
  - Poor quality sleep [Not Recovered/Not Resolved]
  - Post-acute COVID-19 syndrome [Unknown]
  - Brain fog [Unknown]
  - Panic reaction [Not Recovered/Not Resolved]
  - Anxiety [Unknown]
  - Product use complaint [Recovered/Resolved]
  - Product preparation issue [Unknown]

NARRATIVE: CASE EVENT DATE: 20230801
